FAERS Safety Report 8377565-0 (Version None)
Quarter: 2012Q2

REPORT INFORMATION
  Report Type: 
  Country: None (occurrence: None)
  Receive Date: 20120522
  Receipt Date: 20120514
  Transmission Date: 20120825
  Serious: Yes (Other)
  Sender: FDA-Public Use
  Company Number: BR-PFIZER INC-2012105105

PATIENT
  Age: 89 Year
  Sex: Female
  Weight: 50 kg

DRUGS (2)
  1. XALATAN [Suspect]
     Indication: GLAUCOMA
     Dosage: 1.5UG (ONE DROP IN THE RIGHT EYE), 1X/DAY
     Route: 047
     Dates: start: 20090101
  2. DORZOLAMIDE HYDROCHLORIDE [Concomitant]
     Dosage: ONE DROP IN BOTH EYES, DAILY
     Dates: start: 20101101

REACTIONS (1)
  - CATARACT [None]
